FAERS Safety Report 6313226-7 (Version None)
Quarter: 2009Q3

REPORT INFORMATION
  Report Type: 
  Country: None (occurrence: None)
  Receive Date: 20090814
  Receipt Date: 20090729
  Transmission Date: 20100115
  Serious: Yes (Death, Hospitalization)
  Sender: FDA-Public Use
  Company Number: 2009000392

PATIENT
  Age: 82 Year
  Sex: Female

DRUGS (7)
  1. ERLOTINIB(ERLOTINIB) (TABLET) (ERLOTINIB) [Suspect]
     Indication: LUNG ADENOCARCINOMA
     Dosage: (150 MG,QD), ORAL
     Route: 048
     Dates: start: 20081119, end: 20081222
  2. RIZE (CLOTIAZEPAN) [Concomitant]
  3. SELBEX (TEPRENONE) [Concomitant]
  4. LANSOPRAZOLE [Concomitant]
  5. DIOVAN [Concomitant]
  6. RIDENDERON (BETAMETHASONE) [Concomitant]
  7. AMOXAPINE [Concomitant]

REACTIONS (8)
  - ANAEMIA [None]
  - BLOOD BILIRUBIN INCREASED [None]
  - BRAIN NEOPLASM [None]
  - CONDITION AGGRAVATED [None]
  - DEPRESSED LEVEL OF CONSCIOUSNESS [None]
  - LUNG ADENOCARCINOMA [None]
  - MALIGNANT NEOPLASM PROGRESSION [None]
  - METASTASES TO BONE MARROW [None]
